FAERS Safety Report 4593962-3 (Version None)
Quarter: 2005Q1

REPORT INFORMATION
  Report Type: 
  Country: None (occurrence: None)
  Receive Date: 20050301
  Receipt Date: 20030505
  Transmission Date: 20050727
  Serious: Yes (Death, Hospitalization, Other)
  Sender: FDA-Public Use
  Company Number: US-MERCK-0305USA00547

PATIENT
  Age: 80 Year
  Sex: Male
  Weight: 82 kg

DRUGS (7)
  1. DILACOR XR [Concomitant]
     Route: 065
     Dates: start: 20010101, end: 20020503
  2. COZAAR [Concomitant]
     Route: 065
     Dates: start: 20010101, end: 20020503
  3. ASPIRIN [Concomitant]
     Route: 065
  4. CORDARONE [Concomitant]
     Route: 065
     Dates: start: 20010101, end: 20020503
  5. LIPITOR [Concomitant]
     Route: 065
     Dates: start: 20010101, end: 20020503
  6. VIOXX [Suspect]
     Route: 048
     Dates: start: 19991216, end: 20020503
  7. FUROSEMIDE [Concomitant]
     Route: 065
     Dates: start: 20010101, end: 20020503

REACTIONS (14)
  - ANGINA UNSTABLE [None]
  - ATRIAL FIBRILLATION [None]
  - ATRIAL FLUTTER [None]
  - CARDIAC FAILURE CONGESTIVE [None]
  - CORONARY ARTERY DISEASE [None]
  - COUGH [None]
  - HYPOKALAEMIA [None]
  - MYOCARDIAL INFARCTION [None]
  - OEDEMA PERIPHERAL [None]
  - OSTEOARTHRITIS [None]
  - PAIN IN EXTREMITY [None]
  - PLEURAL EFFUSION [None]
  - RHINITIS ALLERGIC [None]
  - THYROID MASS [None]
